FAERS Safety Report 4784819-3 (Version None)
Quarter: 2005Q3

REPORT INFORMATION
  Report Type: 
  Country: None (occurrence: None)
  Receive Date: 20050928
  Receipt Date: 20050912
  Transmission Date: 20060218
  Serious: Yes (Other)
  Sender: FDA-Public Use
  Company Number: USA0508106089

PATIENT
  Age: 88 Year
  Sex: Female

DRUGS (15)
  1. FORTEO [Suspect]
     Dosage: 20 UG DAY
     Dates: start: 20050816
  2. ASCORBIC ACID [Concomitant]
  3. ACETAMINOPHEN [Concomitant]
  4. CALCIUM CARBONATE W/VITAMIN D NOS [Concomitant]
  5. COLACE (DOCUSATE SODIUM) [Concomitant]
  6. FOSAMAX [Concomitant]
  7. COUMADIN [Concomitant]
  8. DIGOXIN [Concomitant]
  9. MIACALCIN [Concomitant]
  10. TOPROL (METOPROLOL SUCCINATE) [Concomitant]
  11. M.V.I. [Concomitant]
  12. REFRESH TEARS PLUS (CARMELLOSE SODIUM) [Concomitant]
  13. PROPYLENE GLYCOL [Concomitant]
  14. ARICEPT [Concomitant]
  15. DEMENTIA [Concomitant]

REACTIONS (5)
  - ARRHYTHMIA [None]
  - HEADACHE [None]
  - PALPITATIONS [None]
  - PHARMACEUTICAL PRODUCT COMPLAINT [None]
  - QUADRIPLEGIA [None]
